FAERS Safety Report 8369347-0 (Version None)
Quarter: 2012Q2

REPORT INFORMATION
  Report Type: 
  Country: None (occurrence: None)
  Receive Date: 20120518
  Receipt Date: 20120509
  Transmission Date: 20120825
  Serious: Yes (Hospitalization)
  Sender: FDA-Public Use
  Company Number: FR-ASTRAZENECA-2012SE14225

PATIENT
  Age: 26 Year
  Sex: Female

DRUGS (9)
  1. ACETAMINOPHEN [Suspect]
     Indication: PAIN
     Route: 048
     Dates: start: 20120127, end: 20120128
  2. SUFENTANIL CITRATE [Suspect]
     Route: 042
     Dates: start: 20120127, end: 20120127
  3. OXYNORM [Suspect]
     Dosage: 10 MG/ML
     Route: 042
     Dates: start: 20120127, end: 20120127
  4. ACUPAN [Suspect]
     Route: 042
  5. ELUDRIL [Suspect]
     Route: 048
     Dates: start: 20120127, end: 20120128
  6. KETOPROFEN [Suspect]
     Indication: PAIN
     Route: 041
     Dates: start: 20120127, end: 20120127
  7. ACETAMINOPHEN [Suspect]
     Dosage: 10 MG/ML
     Route: 042
     Dates: start: 20120127, end: 20120127
  8. AMOXICILLIN [Suspect]
     Route: 048
     Dates: start: 20120127, end: 20120128
  9. DIPRIVAN [Suspect]
     Indication: ANAESTHESIA
     Route: 042
     Dates: start: 20120127, end: 20120127

REACTIONS (1)
  - CYTOLYTIC HEPATITIS [None]
